FAERS Safety Report 20621182 (Version 1)
Quarter: 2022Q1

REPORT INFORMATION
  Report Type: Spontaneous
  Country: US (occurrence: None)
  Receive Date: 20220322
  Receipt Date: 20220322
  Transmission Date: 20220424
  Serious: Yes (Death, Life-Threatening, Hospitalization, Other)
  Sender: FDA-Public Use
  Company Number: US-MLMSERVICE-20220314-3422917-1

PATIENT
  Age: 52 Year
  Sex: Male

DRUGS (1)
  1. PREDNISONE [Suspect]
     Active Substance: PREDNISONE
     Indication: Focal segmental glomerulosclerosis
     Route: 065

REACTIONS (5)
  - Encephalitis [Fatal]
  - Infection reactivation [Fatal]
  - Sepsis [Fatal]
  - Arachnoiditis [Fatal]
  - Disseminated coccidioidomycosis [Fatal]
